FAERS Safety Report 12540162 (Version 2)
Quarter: 2016Q3

REPORT INFORMATION
  Report Type: Spontaneous
  Country: US (occurrence: US)
  Receive Date: 20160708
  Receipt Date: 20160815
  Transmission Date: 20161109
  Serious: Yes (Life-Threatening, Other)
  Sender: FDA-Public Use
  Company Number: US-PFIZER INC-2016326374

PATIENT
  Age: 66 Year
  Sex: Female
  Weight: 89 kg

DRUGS (40)
  1. PHYTOMENADIONE [Suspect]
     Active Substance: PHYTONADIONE
     Indication: INTERNATIONAL NORMALISED RATIO INCREASED
     Dosage: 5 MG, SINGLE/^ONE TIME DOSE/RECEIVED 30 ML (=1.5 MG VIT K) OF IVPB
     Route: 042
     Dates: start: 20160623, end: 20160623
  2. SENSIPAR [Concomitant]
     Active Substance: CINACALCET HYDROCHLORIDE
     Dosage: 30 MG, DAILY
     Route: 048
  3. GLUTOSE [Concomitant]
     Active Substance: DEXTROSE
     Indication: HYPOGLYCAEMIA
     Dosage: 15 G, AS NEEDED (40% 1 TUBE= 37.5 GRAMS GEL=15 GRAMS DEXTROSE 15 G)
     Route: 048
     Dates: start: 20160622, end: 20160630
  4. APRESOLINE HYDROCHLORIDE [Concomitant]
     Active Substance: HYDRALAZINE HYDROCHLORIDE
     Dosage: 50 MG, 3X/DAY
     Route: 048
     Dates: start: 20160622, end: 20160630
  5. TYLENOL [Concomitant]
     Active Substance: ACETAMINOPHEN
     Indication: PAIN
     Dosage: 325-650 MG EVERY 4 HOURS PRN
     Route: 054
     Dates: start: 20160622, end: 20160630
  6. ZOFRAN [Concomitant]
     Active Substance: ONDANSETRON HYDROCHLORIDE
     Indication: VOMITING
  7. ATROPINE. [Concomitant]
     Active Substance: ATROPINE
     Indication: BRADYCARDIA
     Dosage: 0.5-1 MG, AS NEEDED
     Route: 042
     Dates: start: 20160622, end: 20160630
  8. EPOGEN, PROCRIT [Concomitant]
     Indication: DIALYSIS
  9. XYLOCAINE [Concomitant]
     Active Substance: LIDOCAINE HYDROCHLORIDE
     Indication: VENTRICULAR TACHYCARDIA
     Dosage: 50-100 MG , AS NEEDED
     Route: 042
     Dates: start: 20160622, end: 20160630
  10. RENVELA [Concomitant]
     Active Substance: SEVELAMER CARBONATE
     Dosage: 1600 MG, 3X/DAY (WITH MEALS)
     Route: 048
  11. TIMOPTIC [Concomitant]
     Active Substance: TIMOLOL MALEATE
     Dosage: 1 DROP INTO BOTH EYES DAILY
     Route: 047
  12. COUMADIN [Concomitant]
     Active Substance: WARFARIN SODIUM
     Dosage: 3 MG, 1X/DAY (AT BEDTIME)
     Route: 048
  13. TYLENOL [Concomitant]
     Active Substance: ACETAMINOPHEN
     Indication: PAIN
     Dosage: 325-650 MG EVERY 4 HOURS PRN
     Route: 048
     Dates: start: 20160622, end: 20160630
  14. ASPIRIN. [Concomitant]
     Active Substance: ASPIRIN
     Dosage: 81 MG, DAILY
     Route: 048
  15. ROCEPHIN [Concomitant]
     Active Substance: CEFTRIAXONE SODIUM
     Dosage: 1G IN 0.9% SODIUM CHLORIDE 100 ML IVPB
     Route: 042
     Dates: start: 20160622, end: 20160624
  16. EPOGEN, PROCRIT [Concomitant]
     Indication: END STAGE RENAL DISEASE
     Dosage: 10000 IU, UNK
     Dates: start: 20160623, end: 20160623
  17. LANTUS [Concomitant]
     Active Substance: INSULIN GLARGINE
     Dosage: 50 IU, 1X/DAY (NIGHTLY AT BEDTIME)
     Route: 058
  18. MORPHINE [Concomitant]
     Active Substance: MORPHINE
     Indication: PAIN
     Dosage: 1-2, EVERY 2 HOURS AS NEEDED (1-2MG)
     Route: 042
     Dates: start: 20160622, end: 20160630
  19. BUMEX [Concomitant]
     Active Substance: BUMETANIDE
     Dosage: 2 MG, 2X/DAY
     Route: 048
  20. PHYTOMENADIONE [Suspect]
     Active Substance: PHYTONADIONE
     Indication: COAGULOPATHY
  21. UROCIT-K [Concomitant]
     Active Substance: POTASSIUM CITRATE
     Dosage: 20 MEQ, 2X/DAY
  22. LIPITOR [Concomitant]
     Active Substance: ATORVASTATIN CALCIUM
     Dosage: 20 MG, DAILY
     Route: 048
  23. GLUCOSE [Concomitant]
     Active Substance: DEXTROSE
     Indication: BLOOD GLUCOSE DECREASED
     Dosage: 16 G, AS NEEDED
     Route: 048
     Dates: start: 20160622, end: 20160630
  24. NITROSTAT [Concomitant]
     Active Substance: NITROGLYCERIN
     Indication: CHEST PAIN
     Dosage: 0.4 MG EVERY 5 MIN PRN CHEST  PAIN
     Route: 060
     Dates: start: 20160622, end: 20160630
  25. ZOFRAN [Concomitant]
     Active Substance: ONDANSETRON HYDROCHLORIDE
     Indication: NAUSEA
     Dosage: 4 MG, EVERY 4 HOURS AS NEEDED
     Route: 042
     Dates: start: 20160622, end: 20160630
  26. SODIUM CHLORIDE. [Concomitant]
     Active Substance: SODIUM CHLORIDE
     Indication: CATHETER MANAGEMENT
     Dosage: 3 ML (FLUSH), 3X/DAY
     Route: 042
     Dates: start: 20160622, end: 20160630
  27. TENORMIN [Concomitant]
     Active Substance: ATENOLOL
     Dosage: 50 MG, 2X/DAY
     Route: 048
  28. D50W [Concomitant]
     Indication: HYPOGLYCAEMIA
     Dosage: 25 ML, AS NEEDED (50% (D50W)SYRINGE 25 ML)
     Route: 042
     Dates: start: 20160622, end: 20160630
  29. FLAGYL [Concomitant]
     Active Substance: METRONIDAZOLE\METRONIDAZOLE HYDROCHLORIDE
     Dosage: 500 MG, 3X/DAY
     Route: 048
     Dates: start: 20160622, end: 20160629
  30. ZOFRAN [Concomitant]
     Active Substance: ONDANSETRON HYDROCHLORIDE
     Indication: NAUSEA
     Dosage: 4 MG EVERY 4 HOURS, AS NEEDED
     Route: 048
     Dates: start: 20160622, end: 20160630
  31. NORCO [Concomitant]
     Active Substance: ACETAMINOPHEN\HYDROCODONE BITARTRATE
     Indication: PAIN
     Dosage: 5-325 MG PER TABLET 1-2 TABLET, EVERY 4 HOURS AS NEEDED
     Route: 048
     Dates: start: 20160622, end: 20160630
  32. XALATAN [Concomitant]
     Active Substance: LATANOPROST
     Dosage: 1 DROP INTO BOTH EYES AT BEDTIME
     Route: 047
  33. MORPHINE [Concomitant]
     Active Substance: MORPHINE
     Indication: CHEST PAIN
     Dosage: 2MG EVERY 5 MINS, AS NEEDED
     Route: 042
     Dates: start: 20160622, end: 20160630
  34. ZOFRAN [Concomitant]
     Active Substance: ONDANSETRON HYDROCHLORIDE
     Indication: VOMITING
  35. TYLENOL [Concomitant]
     Active Substance: ACETAMINOPHEN
     Indication: PYREXIA
  36. TYLENOL [Concomitant]
     Active Substance: ACETAMINOPHEN
     Indication: PYREXIA
  37. D50W [Concomitant]
     Dosage: 25 ML, AS NEEDED (50% (D50W)SYRINGE 25 ML)
     Route: 042
     Dates: start: 20160625, end: 20160630
  38. CARDURA [Concomitant]
     Active Substance: DOXAZOSIN MESYLATE
     Dosage: 4 MG, 2X/DAY
     Route: 048
  39. HUMAN RECOMBINANT [Concomitant]
     Indication: HYPOGLYCAEMIA
     Dosage: 1 MG, AS NEEDED
     Route: 058
     Dates: start: 20160622, end: 20160630
  40. HUMALOG [Concomitant]
     Active Substance: INSULIN LISPRO
     Dosage: 2-10 UNITS; BEFORE MEALS AND AT BEDTIME
     Route: 058

REACTIONS (2)
  - Unresponsive to stimuli [Recovered/Resolved]
  - Cardio-respiratory arrest [Recovered/Resolved]

NARRATIVE: CASE EVENT DATE: 20160623
